FAERS Safety Report 5948342-2 (Version None)
Quarter: 2008Q4

REPORT INFORMATION
  Report Type: 
  Country: None (occurrence: None)
  Receive Date: 20081110
  Receipt Date: 20081110
  Transmission Date: 20090506
  Serious: Yes (Hospitalization, Other)
  Sender: FDA-Public Use
  Company Number: None

PATIENT
  Age: 82 Year
  Sex: Male
  Weight: 54.4316 kg

DRUGS (1)
  1. HALDOL [Suspect]

REACTIONS (3)
  - ABASIA [None]
  - APHASIA [None]
  - OVERDOSE [None]
